FAERS Safety Report 14418643 (Version 1)
Quarter: 2018Q1

REPORT INFORMATION
  Report Type: Spontaneous
  Country: US (occurrence: US)
  Receive Date: 20180122
  Receipt Date: 20180122
  Transmission Date: 20180509
  Serious: Yes (Other)
  Sender: FDA-Public Use
  Company Number: US-TEVA-2018-US-847221

PATIENT

DRUGS (6)
  1. PREVNAR 13 [Concomitant]
     Active Substance: PNEUMOCOCCAL 13-VALENT CONJUGATE VACCINE
     Indication: PNEUMONIA
  2. FLUAD [Concomitant]
     Active Substance: INFLUENZA VIRUS VACCINE
  3. WARFARIN [Suspect]
     Active Substance: WARFARIN
     Route: 065
  4. MEDROL [Concomitant]
     Active Substance: METHYLPREDNISOLONE
     Indication: MUSCULOSKELETAL PAIN
  5. PREDNISONE. [Interacting]
     Active Substance: PREDNISONE
     Indication: POLYMYALGIA RHEUMATICA
     Dosage: TWO TABLETS IN THE MORNING AND TWO TABLETS AT BEDTIME
     Route: 065
  6. TYLENOL WITH CODEINE [Concomitant]
     Active Substance: ACETAMINOPHEN\CODEINE PHOSPHATE
     Indication: ROTATOR CUFF SYNDROME

REACTIONS (2)
  - International normalised ratio increased [Unknown]
  - Drug interaction [Unknown]
